FAERS Safety Report 7357407-2 (Version None)
Quarter: 2011Q1

REPORT INFORMATION
  Report Type: 
  Country: None (occurrence: None)
  Receive Date: 20110317
  Receipt Date: 20110315
  Transmission Date: 20110831
  Serious: Yes (Other)
  Sender: FDA-Public Use
  Company Number: GB-PFIZER INC-2011057402

PATIENT
  Age: 66 Year
  Sex: Female

DRUGS (3)
  1. IBUPROFEN [Concomitant]
     Indication: PAIN IN EXTREMITY
     Dosage: 400 MG, 3X/DAY
     Route: 048
     Dates: start: 20110203
  2. OXYTETRACYCLINE [Concomitant]
     Indication: COUGH
     Dosage: 250 MG, 4X/DAY
     Route: 048
     Dates: start: 20110203, end: 20110203
  3. CHAMPIX [Suspect]
     Indication: SMOKING CESSATION THERAPY
     Dosage: UNK
     Route: 048
     Dates: start: 20110203, end: 20110206

REACTIONS (2)
  - CONDITION AGGRAVATED [None]
  - COELIAC DISEASE [None]
